FAERS Safety Report 20032026 (Version 5)
Quarter: 2022Q1

REPORT INFORMATION
  Report Type: Spontaneous
  Country: LB (occurrence: LB)
  Receive Date: 20211103
  Receipt Date: 20220120
  Transmission Date: 20220424
  Serious: Yes (Death, Hospitalization, Other)
  Sender: FDA-Public Use
  Company Number: LB-BAYER-2021A239528

PATIENT

DRUGS (3)
  1. EYLEA [Suspect]
     Active Substance: AFLIBERCEPT
     Indication: Neovascular age-related macular degeneration
     Dosage: OS, LOADING DOSE
     Route: 031
     Dates: start: 202107, end: 202107
  2. EYLEA [Suspect]
     Active Substance: AFLIBERCEPT
     Dosage: OD, LOADING DOSE
     Route: 031
     Dates: start: 20210806, end: 20210806
  3. EYLEA [Suspect]
     Active Substance: AFLIBERCEPT
     Dosage: UNK
     Dates: start: 20210828, end: 20210828

REACTIONS (8)
  - Glioblastoma [Fatal]
  - Hypoaesthesia [Unknown]
  - Metastases to central nervous system [Not Recovered/Not Resolved]
  - Central nervous system infection [Not Recovered/Not Resolved]
  - Aphasia [Not Recovered/Not Resolved]
  - Balance disorder [Not Recovered/Not Resolved]
  - Food refusal [Not Recovered/Not Resolved]
  - Asthenia [Not Recovered/Not Resolved]

NARRATIVE: CASE EVENT DATE: 20210801
